FAERS Safety Report 4785288-X (Version None)
Quarter: 2005Q3

REPORT INFORMATION
  Report Type: 
  Country: None (occurrence: None)
  Receive Date: 20050929
  Receipt Date: 20050914
  Transmission Date: 20060218
  Serious: Yes (Hospitalization, Other)
  Sender: FDA-Public Use
  Company Number: GXKR2005FR01381

PATIENT
  Age: 63 Year
  Sex: Female

DRUGS (3)
  1. FLUOXETINE [Suspect]
     Dosage: 20 MG, QD
     Dates: end: 20050705
  2. MEPRONIZINE(ACEPROMETAZINE, MEPROBAMATE) [Suspect]
     Dosage: 1 DF, QD
     Dates: end: 20050705
  3. LORAZEPAM [Suspect]
     Dosage: 3DF, QD
     Dates: end: 20050705

REACTIONS (8)
  - BRADYCARDIA [None]
  - CARDIAC DISORDER [None]
  - ELECTROCARDIOGRAM QT CORRECTED INTERVAL PROLONGED [None]
  - ELECTROCARDIOGRAM QT PROLONGED [None]
  - FALL [None]
  - HEAD INJURY [None]
  - SYNCOPE [None]
  - TORSADE DE POINTES [None]
